FAERS Safety Report 17331964 (Version 3)
Quarter: 2021Q3

REPORT INFORMATION
  Report Type: Spontaneous
  Country: US (occurrence: US)
  Receive Date: 20200127
  Receipt Date: 20210823
  Transmission Date: 20211014
  Serious: No
  Sender: FDA-Public Use
  Company Number: US-ARBOR PHARMACEUTICALS, LLC-US-2019ARB001678

PATIENT
  Sex: Male

DRUGS (2)
  1. TRIPTODUR [Suspect]
     Active Substance: TRIPTORELIN
     Indication: PRECOCIOUS PUBERTY
     Dosage: UNK, SINGLE
     Route: 030
     Dates: start: 20181003, end: 20181003
  2. TRIPTODUR [Suspect]
     Active Substance: TRIPTORELIN
     Dosage: UNK, SINGLE
     Route: 030

REACTIONS (2)
  - Therapeutic product effect decreased [Unknown]
  - Drug ineffective [Unknown]
